FAERS Safety Report 23493963 (Version 1)
Quarter: 2024Q1

REPORT INFORMATION
  Report Type: Report from Study
  Country: BR (occurrence: BR)
  Receive Date: 20240207
  Receipt Date: 20240207
  Transmission Date: 20240410
  Serious: Yes (Hospitalization, Other)
  Sender: FDA-Public Use
  Company Number: BR-AMGEN-BRASL2022053506

PATIENT
  Age: 73 Year
  Sex: Male

DRUGS (7)
  1. VECTIBIX [Suspect]
     Active Substance: PANITUMUMAB
     Indication: Colorectal cancer metastatic
     Dosage: UNK, EVERY 15 DAYS
     Route: 042
     Dates: start: 20220122
  2. VECTIBIX [Suspect]
     Active Substance: PANITUMUMAB
     Dosage: UNK, EVERY 15 DAYS
     Route: 042
     Dates: start: 20230704
  3. SOTALOL HYDROCHLORIDE [Concomitant]
     Active Substance: SOTALOL HYDROCHLORIDE
     Dosage: 170 MILLIGRAM
     Route: 065
  4. UNSPECIFIED INGREDIENT [Concomitant]
     Active Substance: UNSPECIFIED INGREDIENT
     Dosage: 1 TABLET, Q12H/EVERY 12 HOURS
     Route: 065
  5. Milgamma [Concomitant]
     Dosage: 150 MILLIGRAM, QD (1 TABLET DAILY.)
     Route: 065
  6. VITAMIN C [Concomitant]
     Active Substance: ASCORBIC ACID
     Dosage: 1 TABLET A DAY/ QD
     Route: 065
  7. VITAMIN D [Concomitant]
     Active Substance: VITAMIN D NOS
     Dosage: 50000 UNIT, QWK (1 TABLET PER WEEK.)
     Route: 065

REACTIONS (18)
  - Neuropathy peripheral [Recovering/Resolving]
  - Intervertebral disc operation [Recovering/Resolving]
  - Colorectal cancer [Recovered/Resolved]
  - Skin reaction [Recovering/Resolving]
  - Acne pustular [Recovering/Resolving]
  - Temperature intolerance [Recovering/Resolving]
  - Pigmentation disorder [Recovering/Resolving]
  - Hypoaesthesia [Recovering/Resolving]
  - Illness [Recovering/Resolving]
  - Back pain [Not Recovered/Not Resolved]
  - Stomatitis [Recovering/Resolving]
  - Pruritus [Not Recovered/Not Resolved]
  - Skin fissures [Recovering/Resolving]
  - Rash [Not Recovered/Not Resolved]
  - Wound [Recovered/Resolved]
  - Dysgeusia [Unknown]
  - Glossitis [Not Recovered/Not Resolved]
  - Hair growth abnormal [Unknown]

NARRATIVE: CASE EVENT DATE: 20220101
